FAERS Safety Report 24913101 (Version 1)
Quarter: 2025Q1

REPORT INFORMATION
  Report Type: Report from Study
  Country: CA (occurrence: CA)
  Receive Date: 20250201
  Receipt Date: 20250201
  Transmission Date: 20250408
  Serious: Yes (Other)
  Sender: ROCHE
  Company Number: CA-ROCHE-10000191805

PATIENT
  Sex: Female

DRUGS (4)
  1. OCREVUS [Suspect]
     Active Substance: OCRELIZUMAB
     Indication: Relapsing-remitting multiple sclerosis
     Dosage: MORE DOSAGE INFORMATION IS 300 MG AT DAY 0 AND 14, THEN 600 MG EVERY 6 MONTHS
     Route: 040
     Dates: start: 20230718
  2. CIPROFLOXACIN [Concomitant]
     Active Substance: CIPROFLOXACIN
  3. METRONIDAZOLE [Concomitant]
     Active Substance: METRONIDAZOLE
  4. CIPRALEX [Concomitant]
     Active Substance: ESCITALOPRAM OXALATE

REACTIONS (4)
  - Abscess limb [Recovered/Resolved]
  - Blood iron decreased [Unknown]
  - Vitamin B12 decreased [Unknown]
  - COVID-19 [Unknown]
